FAERS Safety Report 6254152-1 (Version None)
Quarter: 2009Q3

REPORT INFORMATION
  Report Type: 
  Country: None (occurrence: None)
  Receive Date: 20090702
  Receipt Date: 20090626
  Transmission Date: 20100115
  Serious: Yes (Hospitalization)
  Sender: FDA-Public Use
  Company Number: FR-ABBOTT-09P-056-0577752-00

PATIENT
  Sex: Female
  Weight: 53 kg

DRUGS (11)
  1. HUMIRA [Suspect]
     Indication: PSORIATIC ARTHROPATHY
     Dates: end: 20090205
  2. GLUCOPHAGE [Concomitant]
     Indication: DIABETES MELLITUS
     Route: 048
  3. OMEPRAZOLE [Concomitant]
     Indication: ABDOMINAL PAIN UPPER
     Route: 048
  4. OMEPRAZOLE [Concomitant]
     Indication: PROPHYLAXIS
  5. INSULIN [Concomitant]
     Indication: DIABETES MELLITUS
     Route: 058
  6. ATACAND [Concomitant]
     Indication: HYPERTENSION
     Route: 048
  7. VASTAREL [Concomitant]
     Indication: ANGIOPATHY
     Route: 048
  8. DIAMICRON [Concomitant]
     Indication: DIABETES MELLITUS
     Route: 048
  9. LIPANTHYL [Concomitant]
     Indication: HYPERCHOLESTEROLAEMIA
     Route: 048
  10. JANUVIA [Concomitant]
     Indication: DIABETES MELLITUS
     Route: 048
  11. BIPERIDYS [Concomitant]
     Indication: GASTROOESOPHAGEAL REFLUX DISEASE
     Route: 048

REACTIONS (1)
  - PAPILLOEDEMA [None]
